FAERS Safety Report 6876308-7 (Version None)
Quarter: 2010Q2

REPORT INFORMATION
  Report Type: 
  Country: None (occurrence: None)
  Receive Date: 20100616
  Receipt Date: 20100407
  Transmission Date: 20101027
  Serious: No
  Sender: FDA-Public Use
  Company Number: DSA_42908_2010

PATIENT
  Sex: Female

DRUGS (2)
  1. XENAZINE [Suspect]
     Indication: HUNTINGTON'S CHOREA
     Dosage: (12.5 MG QD ORAL)
     Route: 048
     Dates: start: 20100218, end: 20100222
  2. XENAZINE [Suspect]
     Indication: TREMOR
     Dosage: (12.5 MG QD ORAL)
     Route: 048
     Dates: start: 20100218, end: 20100222

REACTIONS (7)
  - AGITATION [None]
  - ANXIETY [None]
  - DYSKINESIA [None]
  - INSOMNIA [None]
  - NERVOUSNESS [None]
  - PANIC ATTACK [None]
  - TREMOR [None]
